FAERS Safety Report 9374583 (Version 1)
Quarter: 2013Q2

REPORT INFORMATION
  Report Type: Spontaneous
  Country: US (occurrence: US)
  Receive Date: 20130628
  Receipt Date: 20130628
  Transmission Date: 20140414
  Serious: No
  Sender: FDA-Public Use
  Company Number: US-BAYER-2013-079287

PATIENT
  Age: 74 Year
  Sex: Female
  Weight: 74.83 kg

DRUGS (8)
  1. ALEVE CAPLET [Suspect]
     Indication: BACK PAIN
     Dosage: 1 DF, PRN
     Route: 048
     Dates: start: 2013
  2. PROZAC [Concomitant]
  3. LISINOPRIL [Concomitant]
  4. MUSCLE RELAXANTS [Concomitant]
  5. ASPIRIN [Concomitant]
  6. AMLODIPINE BESYLATE [Concomitant]
  7. DOXYCYCLIN [DOXYCYCLINE HYDROCHLORIDE] [Concomitant]
  8. GLUCOSAMINE [GLUCOSAMINE SULFATE] [Concomitant]

REACTIONS (1)
  - Drug ineffective [None]
